FAERS Safety Report 20684931 (Version 1)
Quarter: 2022Q2

REPORT INFORMATION
  Report Type: Spontaneous
  Country: US (occurrence: None)
  Receive Date: 20220405
  Receipt Date: 20220405
  Transmission Date: 20220721
  Serious: No
  Sender: FDA-Public Use
  Company Number: None

PATIENT
  Age: 37 Year
  Sex: Female

DRUGS (1)
  1. INFLECTRA [Suspect]
     Active Substance: INFLIXIMAB-DYYB
     Route: 042
     Dates: end: 20220201

REACTIONS (3)
  - Arthralgia [None]
  - Arthritis [None]
  - Lupus-like syndrome [None]

NARRATIVE: CASE EVENT DATE: 20220201
